FAERS Safety Report 14964767 (Version 1)
Quarter: 2018Q2

REPORT INFORMATION
  Report Type: Report from Study
  Country: US (occurrence: US)
  Receive Date: 20180601
  Receipt Date: 20180601
  Transmission Date: 20180711
  Serious: Yes (Hospitalization, Other)
  Sender: FDA-Public Use
  Company Number: US-TEVA-691843USA

PATIENT
  Age: 60 Year
  Sex: Female

DRUGS (4)
  1. COPAXONE [Suspect]
     Active Substance: GLATIRAMER ACETATE
     Indication: MULTIPLE SCLEROSIS
     Route: 058
  2. COPAXONE [Suspect]
     Active Substance: GLATIRAMER ACETATE
     Route: 058
     Dates: start: 20160616, end: 20160904
  3. COPAXONE [Suspect]
     Active Substance: GLATIRAMER ACETATE
     Route: 058
     Dates: start: 20141028, end: 20150131
  4. COPAXONE [Suspect]
     Active Substance: GLATIRAMER ACETATE
     Route: 058
     Dates: start: 20140408, end: 20140808

REACTIONS (10)
  - Paralysis [Not Recovered/Not Resolved]
  - Rash [Unknown]
  - Myocardial infarction [Unknown]
  - Dyspnoea [Unknown]
  - Seizure [Unknown]
  - Herpes zoster [Unknown]
  - Myalgia [Unknown]
  - Chest discomfort [Unknown]
  - Palpitations [Unknown]
  - Musculoskeletal stiffness [Unknown]

NARRATIVE: CASE EVENT DATE: 20160904
